FAERS Safety Report 7135617-7 (Version None)
Quarter: 2010Q4

REPORT INFORMATION
  Report Type: 
  Country: None (occurrence: None)
  Receive Date: 20101203
  Receipt Date: 20101122
  Transmission Date: 20110411
  Serious: Yes (Death, Other)
  Sender: FDA-Public Use
  Company Number: US-ELI_LILLY_AND_COMPANY-US201011006208

PATIENT
  Sex: Female

DRUGS (4)
  1. FORTEO [Suspect]
  2. TIAZAC                             /00489702/ [Concomitant]
  3. ZAROXOLYN [Concomitant]
  4. MICRO-K [Concomitant]

REACTIONS (3)
  - COLON CANCER [None]
  - CONSTIPATION [None]
  - MALAISE [None]
